FAERS Safety Report 8970781 (Version 1)
Quarter: 2012Q4

REPORT INFORMATION
  Report Type: 
  Country: US (occurrence: US)
  Receive Date: 20121218
  Receipt Date: 20121218
  Transmission Date: 20130627
  Serious: No
  Sender: FDA-Public Use
  Company Number: US-BAYER-2012-132375

PATIENT
  Age: 38 Year
  Sex: Female

DRUGS (2)
  1. BEYAZ [Suspect]
     Indication: CRAMP IN LOWER ABDOMEN
     Dosage: UNK
     Dates: start: 20121128, end: 20121212
  2. BEYAZ [Suspect]
     Indication: OVARIAN CYST

REACTIONS (1)
  - Mood swings [None]
